FAERS Safety Report 26007449 (Version 2)
Quarter: 2025Q4

REPORT INFORMATION
  Report Type: Spontaneous
  Country: US (occurrence: US)
  Receive Date: 20251106
  Receipt Date: 20251202
  Transmission Date: 20260117
  Serious: Yes (Other)
  Sender: PFIZER
  Company Number: US-PFIZER INC-202500215765

PATIENT
  Age: 50 Year
  Sex: Male

DRUGS (1)
  1. SOMATROPIN [Suspect]
     Active Substance: SOMATROPIN
     Dosage: UNK
     Dates: start: 2010, end: 2010

REACTIONS (3)
  - Throat cancer [Recovered/Resolved]
  - Papilloma viral infection [Recovered/Resolved]
  - Testicular mass [Unknown]

NARRATIVE: CASE EVENT DATE: 20100101
